FAERS Safety Report 12316927 (Version 1)
Quarter: 2016Q2

REPORT INFORMATION
  Report Type: Spontaneous
  Country: US (occurrence: None)
  Receive Date: 20160428
  Receipt Date: 20160428
  Transmission Date: 20160815
  Serious: Yes (Other)
  Sender: FDA-Public Use
  Company Number: None

PATIENT
  Age: 46 Year
  Sex: Female
  Weight: 81.65 kg

DRUGS (1)
  1. COPPERTONE SPORT SPF 30 [Suspect]
     Active Substance: AVOBENZONE\HOMOSALATE\OCTISALATE\OCTOCRYLENE
     Indication: PROPHYLAXIS AGAINST SOLAR RADIATION
     Dosage: 2 SPRAY (S) EVERY 80 MINUTES APPLIED TO A SURFACE, USUALLY THE SKIN
     Dates: start: 20160417, end: 20160419

REACTIONS (4)
  - Sleep disorder due to general medical condition, insomnia type [None]
  - Application site rash [None]
  - Urticaria [None]
  - Rash erythematous [None]

NARRATIVE: CASE EVENT DATE: 20160418
